FAERS Safety Report 4442831-8 (Version None)
Quarter: 2004Q3

REPORT INFORMATION
  Report Type: 
  Country: None (occurrence: None)
  Receive Date: 20040903
  Receipt Date: 20040520
  Transmission Date: 20050211
  Serious: Yes (Other)
  Sender: FDA-Public Use
  Company Number: 2004UW10726

PATIENT
  Age: 54 Year
  Sex: Male
  Weight: 107.9561 kg

DRUGS (3)
  1. CRESTOR [Suspect]
     Indication: BLOOD CHOLESTEROL INCREASED
     Dosage: 10 MG PO
     Route: 048
     Dates: start: 20040519
  2. XANAX [Concomitant]
  3. ATENOLOL [Concomitant]

REACTIONS (3)
  - DIZZINESS [None]
  - OROPHARYNGEAL SWELLING [None]
  - TINNITUS [None]
